FAERS Safety Report 21027739 (Version 4)
Quarter: 2022Q3

REPORT INFORMATION
  Report Type: Report from Study
  Country: IL (occurrence: IL)
  Receive Date: 20220630
  Receipt Date: 20220715
  Transmission Date: 20221027
  Serious: Yes (Hospitalization, Other)
  Sender: FDA-Public Use
  Company Number: IL-ABBVIE-22K-082-4448969-00

PATIENT
  Sex: Female

DRUGS (3)
  1. CARBIDOPA\LEVODOPA [Suspect]
     Active Substance: CARBIDOPA\LEVODOPA
     Indication: Parkinson^s disease
     Route: 050
     Dates: start: 20170722
  2. CARBIDOPA\LEVODOPA [Suspect]
     Active Substance: CARBIDOPA\LEVODOPA
     Dosage: MORNING DOSAGE(ML)  15.0, CONTINUOUS DOSAGE (ML/H)  4.6, EXTRA DOSAGE (ML)  4.0
     Route: 050
  3. CARBIDOPA\LEVODOPA [Suspect]
     Active Substance: CARBIDOPA\LEVODOPA
     Route: 050

REACTIONS (9)
  - Infection [Recovering/Resolving]
  - Lower limb fracture [Recovering/Resolving]
  - Femur fracture [Recovering/Resolving]
  - Respiratory distress [Unknown]
  - Oxygen saturation decreased [Unknown]
  - Pulmonary embolism [Recovering/Resolving]
  - Fall [Recovering/Resolving]
  - Pneumonia [Unknown]
  - Wound [Unknown]
